FAERS Safety Report 8179506-8 (Version None)
Quarter: 2012Q1

REPORT INFORMATION
  Report Type: 
  Country: None (occurrence: None)
  Receive Date: 20120302
  Receipt Date: 20120222
  Transmission Date: 20120608
  Serious: Yes (Death)
  Sender: FDA-Public Use
  Company Number: JP-JNJFOC-20120300179

PATIENT
  Age: 64 Year
  Sex: Male

DRUGS (2)
  1. CIPROFLOXACIN [Suspect]
     Indication: PNEUMONIA
     Route: 065
  2. LEVOFLOXACIN [Suspect]
     Indication: ENTEROCOLITIS
     Route: 065

REACTIONS (1)
  - ACUTE LEUKAEMIA [None]
